FAERS Safety Report 8542860-9 (Version None)
Quarter: 2012Q3

REPORT INFORMATION
  Report Type: 
  Country: None (occurrence: None)
  Receive Date: 20120727
  Receipt Date: 20120712
  Transmission Date: 20120928
  Serious: Yes (Hospitalization, Other)
  Sender: FDA-Public Use
  Company Number: FR-AMGEN-FRASP2012044661

PATIENT
  Age: 76 Year
  Sex: Female

DRUGS (13)
  1. ATORVASTATIN [Concomitant]
     Dosage: 10 MG, UNK
  2. BISOPROLOL FUMARATE [Concomitant]
  3. METHOTREXATE SODIUM [Suspect]
     Indication: RHEUMATOID ARTHRITIS
     Dosage: UNK
     Route: 042
     Dates: start: 20080101, end: 20120301
  4. AMLODIPINE BESYLATE [Concomitant]
     Dosage: 5 MG, UNK
  5. PRAZEPAM [Concomitant]
     Dosage: UNK
  6. ATOVAQUONE [Concomitant]
     Dosage: UNK
     Dates: end: 20120515
  7. PREDNISONE TAB [Suspect]
     Indication: RHEUMATOID ARTHRITIS
     Dosage: 5 MG, QD
     Route: 048
     Dates: start: 20080101
  8. SULFAMETTHOXAZOLE AND TRIMETHOPRIM [Concomitant]
     Dosage: 9 UNK, UNK
     Route: 042
     Dates: start: 20120405
  9. ENBREL [Suspect]
     Indication: RHEUMATOID ARTHRITIS
     Dosage: UNK
     Route: 042
     Dates: start: 20120316, end: 20120316
  10. VALACICLOVIR [Concomitant]
     Dosage: UNK
     Dates: end: 20120406
  11. VALSARTAN  AND HYDROCHLOROTHIAZIDE [Concomitant]
     Dosage: UNK
     Dates: end: 20120405
  12. VASTAREL [Concomitant]
     Dosage: 20 MG, UNK
  13. LEVOTHYROXINE SODIUM [Concomitant]
     Dosage: 25 UG, UNK

REACTIONS (20)
  - DYSPNOEA [None]
  - SEPSIS [None]
  - HAEMODIALYSIS [None]
  - ACUTE RESPIRATORY DISTRESS SYNDROME [None]
  - PNEUMOCYSTIS JIROVECI PNEUMONIA [None]
  - CANDIDIASIS [None]
  - ELECTROCARDIOGRAM ST SEGMENT ELEVATION [None]
  - PROTEUS TEST POSITIVE [None]
  - ATRIAL FIBRILLATION [None]
  - ENTEROCOCCUS TEST POSITIVE [None]
  - TREATMENT FAILURE [None]
  - NEPHROPATHY TOXIC [None]
  - SIMPLEX VIRUS TEST POSITIVE [None]
  - RENAL FAILURE ACUTE [None]
  - INCORRECT ROUTE OF DRUG ADMINISTRATION [None]
  - TORULOPSIS INFECTION [None]
  - CYTOMEGALOVIRUS TEST POSITIVE [None]
  - DEEP VEIN THROMBOSIS [None]
  - HYPOTENSION [None]
  - ALTERED STATE OF CONSCIOUSNESS [None]
